FAERS Safety Report 17607820 (Version 4)
Quarter: 2020Q2

REPORT INFORMATION
  Report Type: Spontaneous
  Country: US (occurrence: US)
  Receive Date: 20200401
  Receipt Date: 20200501
  Transmission Date: 20200713
  Serious: Yes (Other)
  Sender: FDA-Public Use
  Company Number: US-GLAXOSMITHKLINE-US2020AMR055458

PATIENT
  Sex: Female

DRUGS (1)
  1. ZEJULA [Suspect]
     Active Substance: NIRAPARIB
     Indication: FALLOPIAN TUBE CANCER
     Dosage: 200 MG, QD
     Dates: start: 20200218

REACTIONS (11)
  - Regurgitation [Unknown]
  - Dizziness [Unknown]
  - Anaemia [Unknown]
  - Nausea [Unknown]
  - Dyspnoea [Unknown]
  - Platelet count decreased [Unknown]
  - Pruritus [Unknown]
  - Fatigue [Unknown]
  - Abdominal pain upper [Unknown]
  - Haemorrhage [Unknown]
  - Dyspepsia [Unknown]
